FAERS Safety Report 14915455 (Version 1)
Quarter: 2018Q2

REPORT INFORMATION
  Report Type: Report from Study
  Country: None (occurrence: NL)
  Receive Date: 20180518
  Receipt Date: 20180518
  Transmission Date: 20180711
  Serious: Yes (Death)
  Sender: FDA-Public Use
  Company Number: NL-ABBVIE-18K-114-2360791-00

PATIENT
  Sex: Male

DRUGS (1)
  1. DUODOPA [Suspect]
     Active Substance: CARBIDOPA\LEVODOPA
     Indication: PARKINSON^S DISEASE
     Dosage: MORNING DOSE: 8.5  ?CD: 4.3  ?ED:  3  NIGHT DOSE: 2.6  ?EXTRA DOSE NIGHT PUMP: 1.5
     Route: 050
     Dates: start: 201511

REACTIONS (1)
  - Pneumonia [Fatal]
